FAERS Safety Report 4709022-4 (Version None)
Quarter: 2005Q3

REPORT INFORMATION
  Report Type: 
  Country: None (occurrence: None)
  Receive Date: 20050707
  Receipt Date: 20050622
  Transmission Date: 20060218
  Serious: Yes (Hospitalization)
  Sender: FDA-Public Use
  Company Number: GXBR2005US01093

PATIENT
  Age: 1 Day
  Sex: Male
  Weight: 3.9 kg

DRUGS (2)
  1. PENICILLIN G POTASSIUM [Suspect]
     Dosage: TRANSPLACENTAL
     Route: 064
  2. LACTATED RINGER'S INJECTION (CALCIUM CHLORIDE DIHYDRATE, POTASSIUM CHL [Concomitant]

REACTIONS (4)
  - APGAR SCORE LOW [None]
  - CAESAREAN SECTION [None]
  - DRUG EXPOSURE DURING PREGNANCY [None]
  - HYPOXIC ENCEPHALOPATHY [None]
